FAERS Safety Report 8709785 (Version 5)
Quarter: 2014Q3

REPORT INFORMATION
  Report Type: Spontaneous
  Country: US (occurrence: US)
  Receive Date: 20120806
  Receipt Date: 20140818
  Transmission Date: 20150326
  Serious: Yes (Hospitalization, Other)
  Sender: FDA-Public Use
  Company Number: US-009507513-1208USA000245

PATIENT
  Sex: Female
  Weight: 74.83 kg

DRUGS (7)
  1. TRAMADOL HYDROCHLORIDE. [Concomitant]
     Active Substance: TRAMADOL HYDROCHLORIDE
     Indication: PAIN
     Dosage: 50 MG, PRN
     Dates: start: 20100728, end: 201009
  2. IBUPROFEN. [Concomitant]
     Active Substance: IBUPROFEN
     Indication: PAIN
     Dosage: 800 MG, PRN
     Dates: start: 20100825, end: 201009
  3. PREDNISONE. [Concomitant]
     Active Substance: PREDNISONE
     Indication: INFLAMMATION
     Dosage: UNK MG, UNK
     Route: 048
     Dates: start: 20100825, end: 201009
  4. PREDNISONE. [Concomitant]
     Active Substance: PREDNISONE
     Indication: SACROILIITIS
  5. NUVARING [Suspect]
     Active Substance: ETHINYL ESTRADIOL\ETONOGESTREL
     Indication: CONTRACEPTION
     Dosage: UNK
     Route: 067
     Dates: start: 20070404, end: 200804
  6. NUVARING [Suspect]
     Active Substance: ETHINYL ESTRADIOL\ETONOGESTREL
     Dosage: UNK
     Route: 067
     Dates: start: 20080403, end: 20090501
  7. NUVARING [Suspect]
     Active Substance: ETHINYL ESTRADIOL\ETONOGESTREL
     Indication: MENSTRUATION IRREGULAR
     Dosage: UNK
     Route: 067
     Dates: start: 20090306, end: 20100904

REACTIONS (16)
  - Oropharyngeal pain [Unknown]
  - Psoriatic arthropathy [Unknown]
  - Syncope [Unknown]
  - Aortic embolus [Recovered/Resolved with Sequelae]
  - Wisdom teeth removal [Unknown]
  - Ulcer haemorrhage [Unknown]
  - Hypoxia [Unknown]
  - Rheumatic disorder [Unknown]
  - Loss of consciousness [Unknown]
  - Off label use [Unknown]
  - Seronegative arthritis [Unknown]
  - Sacroiliitis [Unknown]
  - Deep vein thrombosis [Recovered/Resolved with Sequelae]
  - Nasopharyngitis [Unknown]
  - Cough [Unknown]
  - Urinary tract infection [Unknown]

NARRATIVE: CASE EVENT DATE: 20070404
